FAERS Safety Report 10075452 (Version 2)
Quarter: 2014Q1

REPORT INFORMATION
  Report Type: Spontaneous
  Country: BE (occurrence: None)
  Receive Date: 20140318
  Receipt Date: 20140321
  Transmission Date: 20141002
  Serious: Yes (Hospitalization, Other)
  Sender: FDA-Public Use
  Company Number: DSA_47514_2011

PATIENT
  Age: 76 Year
  Sex: Male

DRUGS (9)
  1. DILTIAZEM [Suspect]
     Indication: HYPERTENSION
     Route: 048
  2. PROPRANOLOL HYDROCHLORIDE [Suspect]
     Indication: PRODUCT USED FOR UNKNOWN INDICATION
     Route: 048
  3. BISOPROLOL HEMIFUMARATE [Suspect]
     Indication: HYPERTENSION
  4. ACETYLSALICYLIC ACID (ACETYLSALICYLIC ACID) (ACETYLSALICYLIC ACID) [Concomitant]
  5. LEVOTHYROXINE SODIUM (LEVOTHYROXINE SODIUM) (LEVOTHYROXINE SODIUM) [Concomitant]
  6. BROTIZOLAM (BROTIZOLAM) (BROTIZOLAM) [Concomitant]
  7. LISINOPRIL (LISINOPRIL) (LISINOPRIL) [Concomitant]
  8. ATORVASTATIN CALCIUM (ATORVASTATIN CALCIUM) (ATORVASTATIN CALCIUM) [Concomitant]
  9. INSULIN (INSULIN) (INSULIN) [Concomitant]

REACTIONS (8)
  - Sepsis [None]
  - Cardiogenic shock [None]
  - Toxicity to various agents [None]
  - Sinus bradycardia [None]
  - Hypotension [None]
  - Pneumonia [None]
  - Dyspnoea [None]
  - Somnolence [None]
